FAERS Safety Report 6416793-8 (Version None)
Quarter: 2009Q4

REPORT INFORMATION
  Report Type: 
  Country: None (occurrence: None)
  Receive Date: 20091027
  Receipt Date: 20091013
  Transmission Date: 20100525
  Serious: Yes (Hospitalization)
  Sender: FDA-Public Use
  Company Number: CA-GENENTECH-292542

PATIENT
  Sex: Female

DRUGS (1)
  1. BEVACIZUMAB [Suspect]
     Indication: HAEMANGIOMA
     Dosage: 645 MG, Q3W
     Route: 065
     Dates: start: 20090720, end: 20091013

REACTIONS (1)
  - GASTROINTESTINAL PERFORATION [None]
